FAERS Safety Report 8159732-4 (Version None)
Quarter: 2012Q1

REPORT INFORMATION
  Report Type: 
  Country: None (occurrence: None)
  Receive Date: 20120223
  Receipt Date: 20120208
  Transmission Date: 20120608
  Serious: Yes (Death, Hospitalization)
  Sender: FDA-Public Use
  Company Number: JP-ROCHE-GNE320364

PATIENT
  Age: 66 Year
  Sex: Female

DRUGS (11)
  1. INSULIN [Concomitant]
     Indication: PRODUCT USED FOR UNKNOWN INDICATION
     Route: 051
  2. HEPARIN SODIUM [Concomitant]
     Indication: PRODUCT USED FOR UNKNOWN INDICATION
     Dosage: UNK
     Route: 041
     Dates: start: 20110211, end: 20110214
  3. EDARAVONE [Suspect]
     Indication: THROMBOTIC CEREBRAL INFARCTION
     Dosage: 60 MG, UNK
     Route: 041
     Dates: end: 20110219
  4. ASPIRIN [Concomitant]
     Route: 048
     Dates: end: 20110226
  5. EDARAVONE [Suspect]
     Dosage: 30 MG, UNK
     Route: 041
     Dates: start: 20110220, end: 20110220
  6. LANTUS [Concomitant]
     Route: 051
     Dates: start: 20110225, end: 20110226
  7. BASEN [Concomitant]
     Route: 048
     Dates: start: 20110216, end: 20110226
  8. ASPIRIN [Concomitant]
     Route: 048
     Dates: start: 20110211, end: 20110211
  9. ALTEPLASE [Suspect]
     Indication: CEREBRAL INFARCTION
     Dosage: 30.2 ML, UNK
     Route: 042
     Dates: start: 20110210, end: 20110210
  10. ASPIRIN [Suspect]
     Indication: THROMBOTIC CEREBRAL INFARCTION
     Route: 048
     Dates: end: 20110217
  11. ALOSENN [Concomitant]
     Route: 048
     Dates: start: 20110216

REACTIONS (6)
  - DISSEMINATED INTRAVASCULAR COAGULATION [None]
  - RASH [None]
  - MULTI-ORGAN FAILURE [None]
  - PYREXIA [None]
  - URINARY TRACT INFECTION [None]
  - SEPSIS [None]
